FAERS Safety Report 7515084-1 (Version None)
Quarter: 2011Q2

REPORT INFORMATION
  Report Type: 
  Country: None (occurrence: None)
  Receive Date: 20110601
  Receipt Date: 20110523
  Transmission Date: 20111010
  Serious: Yes (Other)
  Sender: FDA-Public Use
  Company Number: US-ASTRAZENECA-2011SE30910

PATIENT
  Age: 72 Year
  Sex: Female

DRUGS (6)
  1. ASPIRIN [Suspect]
  2. LISINOPRIL [Suspect]
     Route: 048
  3. METOPROLOL TARTRATE [Suspect]
     Route: 048
  4. HYDRALAZINE HCL [Suspect]
     Indication: HYPERTENSION
  5. CLONIDINE [Suspect]
  6. FUROSEMIDE [Suspect]

REACTIONS (1)
  - CUTANEOUS LUPUS ERYTHEMATOSUS [None]
